FAERS Safety Report 9194214 (Version 1)
Quarter: 2013Q1

REPORT INFORMATION
  Report Type: Spontaneous
  Country: None (occurrence: US)
  Receive Date: 20130327
  Receipt Date: 20130327
  Transmission Date: 20140127
  Serious: No
  Sender: FDA-Public Use
  Company Number: US-TEVA-394345USA

PATIENT
  Sex: Female

DRUGS (2)
  1. QNASL [Suspect]
     Indication: RHINITIS ALLERGIC
  2. QNASL [Suspect]
     Indication: NASAL CONGESTION

REACTIONS (1)
  - Blister [Unknown]
